FAERS Safety Report 18595519 (Version 1)
Quarter: 2020Q4

REPORT INFORMATION
  Report Type: Spontaneous
  Country: US (occurrence: US)
  Receive Date: 20201209
  Receipt Date: 20201209
  Transmission Date: 20210114
  Serious: Yes (Death)
  Sender: FDA-Public Use
  Company Number: None

PATIENT
  Age: 80 Year
  Sex: Female
  Weight: 51.3 kg

DRUGS (22)
  1. AROMASIN [Concomitant]
     Active Substance: EXEMESTANE
  2. CALCIUM [Concomitant]
     Active Substance: CALCIUM
  3. OMEGA 3 [Concomitant]
     Active Substance: OMEGA-3 FATTY ACIDS
  4. FAMOTIDINE. [Concomitant]
     Active Substance: FAMOTIDINE
  5. FLUOXETINE [Concomitant]
     Active Substance: FLUOXETINE HYDROCHLORIDE
  6. IBRANCE [Suspect]
     Active Substance: PALBOCICLIB
     Indication: BREAST CANCER
     Route: 048
     Dates: start: 20190823
  7. BACLOFEN. [Concomitant]
     Active Substance: BACLOFEN
  8. DURAGESIC [Concomitant]
     Active Substance: FENTANYL
  9. POTASSIUM [Concomitant]
     Active Substance: POTASSIUM
  10. DEXAMETHASONE. [Concomitant]
     Active Substance: DEXAMETHASONE
  11. FEMARA [Concomitant]
     Active Substance: LETROZOLE
  12. OMEPRAZOLE. [Concomitant]
     Active Substance: OMEPRAZOLE
  13. RALOXIFENE. [Concomitant]
     Active Substance: RALOXIFENE
  14. MULTIVITAMIN [Concomitant]
     Active Substance: VITAMINS
  15. ONDANSETRON [Concomitant]
     Active Substance: ONDANSETRON
  16. RANITIDINE. [Concomitant]
     Active Substance: RANITIDINE
  17. TIZANIDINE. [Concomitant]
     Active Substance: TIZANIDINE
  18. NORTRIPTYLINE [Concomitant]
     Active Substance: NORTRIPTYLINE
  19. XTAMPZA ER [Concomitant]
     Active Substance: OXYCODONE
  20. CARBIDOPA AND LEVODOPA [Concomitant]
     Active Substance: CARBIDOPA\LEVODOPA
  21. COLACE [Concomitant]
     Active Substance: DOCUSATE SODIUM
  22. OXYCODONE [Concomitant]
     Active Substance: OXYCODONE

REACTIONS (1)
  - Death [None]

NARRATIVE: CASE EVENT DATE: 20201209
